FAERS Safety Report 4789357-X (Version None)
Quarter: 2005Q3

REPORT INFORMATION
  Report Type: 
  Country: None (occurrence: None)
  Receive Date: 20050929
  Receipt Date: 20050601
  Transmission Date: 20060218
  Serious: No
  Sender: FDA-Public Use
  Company Number: 05P-163-0302045-00

PATIENT
  Age: 62 Year
  Sex: Female
  Weight: 74.8435 kg

DRUGS (7)
  1. HUMIRA [Suspect]
     Indication: RHEUMATOID ARTHRITIS
     Dosage: 40 MG, 1 IN 2 WK, SUBCUTANEOUS
     Route: 058
     Dates: start: 20040412, end: 20050425
  2. B-KOMPLEX ^LECIVA^ [Concomitant]
  3. LEKOVIT CA [Concomitant]
  4. TOCOPHEROL CONCENTRATE CAP [Concomitant]
  5. ESTRADIOL [Concomitant]
  6. FOLIC ACID [Concomitant]
  7. METHOTREXATE [Concomitant]

REACTIONS (5)
  - BLISTER [None]
  - HERPES SIMPLEX [None]
  - PRURITUS [None]
  - RASH [None]
  - UPPER RESPIRATORY TRACT INFECTION [None]
